FAERS Safety Report 9975702 (Version 1)
Quarter: 2014Q1

REPORT INFORMATION
  Report Type: Report from Study
  Country: US (occurrence: US)
  Receive Date: 20140306
  Receipt Date: 20140306
  Transmission Date: 20141002
  Serious: No
  Sender: FDA-Public Use
  Company Number: US-ABBVIE-13P-163-1160590-00

PATIENT
  Age: 24 Year
  Sex: Female

DRUGS (8)
  1. HUMIRA [Suspect]
     Indication: COLITIS ULCERATIVE
     Dates: start: 201308
  2. PREDNISONE [Concomitant]
     Indication: COLITIS ULCERATIVE
  3. PREDNISONE [Concomitant]
  4. PREDNISONE [Concomitant]
     Dosage: WILL TAPER OFF THIS WEEK
  5. LORATADINE [Concomitant]
     Indication: SEASONAL ALLERGY
  6. PROAIR [Concomitant]
     Indication: ASTHMA
     Dosage: AN HOUR BEFORE EXERCISE AND PRN
  7. CONTRACEPTIVES [Concomitant]
  8. MULTIVITAMIN [Concomitant]
     Indication: PRODUCT USED FOR UNKNOWN INDICATION

REACTIONS (2)
  - Anxiety [Recovered/Resolved]
  - Ear infection [Recovered/Resolved]
